FAERS Safety Report 20404669 (Version 1)
Quarter: 2022Q1

REPORT INFORMATION
  Report Type: Spontaneous
  Country: US (occurrence: None)
  Receive Date: 20220128
  Receipt Date: 20220128
  Transmission Date: 20220423
  Serious: No
  Sender: FDA-Public Use
  Company Number: None

PATIENT
  Age: 79 Year
  Sex: Male
  Weight: 81 kg

DRUGS (7)
  1. MOLNUPIRAVIR [Suspect]
     Active Substance: MOLNUPIRAVIR
     Indication: COVID-19
     Dosage: FREQUENCY : TWICE A DAY;?
     Route: 048
  2. SYNTHROID [Concomitant]
  3. FINASTERIDE [Concomitant]
     Active Substance: FINASTERIDE
  4. SIMVASTATIN [Suspect]
     Active Substance: SIMVASTATIN
  5. VITAMIN D3 [Concomitant]
     Active Substance: CHOLECALCIFEROL
  6. VITAMIN B12 [Concomitant]
     Active Substance: CYANOCOBALAMIN
  7. ZINC [Concomitant]
     Active Substance: ZINC

REACTIONS (2)
  - Pain of skin [None]
  - Pain [None]

NARRATIVE: CASE EVENT DATE: 20220127
